FAERS Safety Report 19098160 (Version 3)
Quarter: 2021Q2

REPORT INFORMATION
  Report Type: Spontaneous
  Country: US (occurrence: US)
  Receive Date: 20210406
  Receipt Date: 20210607
  Transmission Date: 20210717
  Serious: Yes (Hospitalization, Other)
  Sender: FDA-Public Use
  Company Number: US-PFIZER INC-2021179287

PATIENT
  Age: 82 Year
  Sex: Male
  Weight: 111.58 kg

DRUGS (3)
  1. ARTHROTEC [Suspect]
     Active Substance: DICLOFENAC SODIUM\MISOPROSTOL
     Dosage: 75 MG, 2X/DAY
     Dates: start: 1975
  2. FUROSEMIDE. [Concomitant]
     Active Substance: FUROSEMIDE
     Dosage: 40 MG
  3. ARTHROTEC [Suspect]
     Active Substance: DICLOFENAC SODIUM\MISOPROSTOL
     Indication: ARTHRITIS
     Dosage: UNK UNK, 2X/DAY (75 MG)
     Route: 048

REACTIONS (2)
  - Memory impairment [Unknown]
  - Bladder cancer [Recovered/Resolved]

NARRATIVE: CASE EVENT DATE: 201907
